FAERS Safety Report 8814480 (Version 1)
Quarter: 2012Q4

REPORT INFORMATION
  Report Type: Spontaneous
  Country: US (occurrence: None)
  Receive Date: 20120927
  Receipt Date: 20120927
  Transmission Date: 20130627
  Serious: Yes (Other)
  Sender: FDA-Public Use
  Company Number: None

PATIENT
  Sex: Female
  Weight: 60.78 kg

DRUGS (2)
  1. LORAZEPAM [Suspect]
     Indication: ANXIETY
     Dosage: 1 mg tid orally
     Dates: start: 20070101
  2. ATIVAN [Suspect]

REACTIONS (3)
  - Nausea [None]
  - Dizziness [None]
  - Malaise [None]
